FAERS Safety Report 21557892 (Version 1)
Quarter: 2022Q4

REPORT INFORMATION
  Report Type: Spontaneous
  Country: US (occurrence: None)
  Receive Date: 20221103
  Receipt Date: 20221103
  Transmission Date: 20230113
  Serious: Yes (Other)
  Sender: FDA-Public Use
  Company Number: None

PATIENT
  Age: 57 Year
  Sex: Female

DRUGS (1)
  1. REVLIMID [Suspect]
     Active Substance: LENALIDOMIDE
     Indication: Plasma cell myeloma
     Dosage: OTHER STRENGTH : 25;?FREQUENCY : DAILY;?
     Route: 048
     Dates: start: 20210803

REACTIONS (4)
  - Diarrhoea [None]
  - Muscle spasms [None]
  - Headache [None]
  - Therapy change [None]

NARRATIVE: CASE EVENT DATE: 20220906
